FAERS Safety Report 15499148 (Version 3)
Quarter: 2021Q4

REPORT INFORMATION
  Report Type: Spontaneous
  Country: ES (occurrence: ES)
  Receive Date: 20181015
  Receipt Date: 20211015
  Transmission Date: 20220304
  Serious: Yes (Hospitalization, Other)
  Sender: FDA-Public Use
  Company Number: None

PATIENT
  Age: 43 Year
  Sex: Female

DRUGS (5)
  1. CELECOXIB [Suspect]
     Active Substance: CELECOXIB
     Indication: Pain in extremity
     Dosage: 200 MG, DAILY
     Route: 048
     Dates: start: 20180501, end: 2018
  2. CELECOXIB [Suspect]
     Active Substance: CELECOXIB
     Indication: Meniscus injury
  3. CHONDROITIN SULFATE (CHICKEN) [Concomitant]
     Active Substance: CHONDROITIN SULFATE (CHICKEN)
     Indication: Meniscus injury
     Dosage: 400 MG, 1X/DAY (400 MG QD; 400 MG DAILY)
     Route: 065
  4. CHONDROITIN SULFATE (CHICKEN) [Concomitant]
     Active Substance: CHONDROITIN SULFATE (CHICKEN)
     Indication: Meniscus injury
  5. METAMIZOLE [Concomitant]
     Active Substance: METAMIZOLE
     Indication: Meniscus injury
     Dosage: 1725 MG, 1X/DAY (1725 MILLIGRAM, QD)
     Route: 065

REACTIONS (1)
  - Bipolar disorder [Recovering/Resolving]

NARRATIVE: CASE EVENT DATE: 20180703
